FAERS Safety Report 6372001-8 (Version None)
Quarter: 2009Q3

REPORT INFORMATION
  Report Type: 
  Country: None (occurrence: None)
  Receive Date: 20090923
  Receipt Date: 20090615
  Transmission Date: 20100115
  Serious: Yes (Death, Hospitalization)
  Sender: FDA-Public Use
  Company Number: ES-ABBOTT-09P-144-0578460-00

PATIENT
  Sex: Male

DRUGS (3)
  1. RITONAVIR SOFT GELATIN CAPSULES [Suspect]
     Indication: HIV INFECTION
     Route: 048
     Dates: start: 20050428, end: 20070516
  2. ATAZANAVIR [Concomitant]
     Indication: HIV INFECTION
     Route: 048
     Dates: start: 20050428, end: 20070516
  3. FANSIDAR [Concomitant]
     Indication: DRUG USE FOR UNKNOWN INDICATION
     Dates: start: 20010101

REACTIONS (2)
  - BLADDER CANCER [None]
  - MULTI-ORGAN FAILURE [None]
